FAERS Safety Report 8220348-2 (Version None)
Quarter: 2012Q1

REPORT INFORMATION
  Report Type: 
  Country: None (occurrence: None)
  Receive Date: 20120320
  Receipt Date: 20120308
  Transmission Date: 20120608
  Serious: Yes (Other)
  Sender: FDA-Public Use
  Company Number: JP-CELGENEUS-087-21880-11030194

PATIENT
  Sex: Female

DRUGS (32)
  1. FAMOTIDINE [Concomitant]
     Dosage: 20 MILLIGRAM
     Route: 048
     Dates: start: 20110407, end: 20110726
  2. FAMOTIDINE [Concomitant]
     Dosage: 20 MILLIGRAM
     Route: 048
     Dates: start: 20110802
  3. ASPIRIN [Concomitant]
     Indication: PROPHYLAXIS
     Dosage: 100 MILLIGRAM
     Route: 048
     Dates: start: 20110113, end: 20110402
  4. PANPYOTIN [Concomitant]
     Dosage: 2 GRAM
     Route: 048
     Dates: start: 20110407, end: 20110725
  5. PANPYOTIN [Concomitant]
     Dosage: 2 GRAM
     Route: 048
     Dates: start: 20110802
  6. DEXAMETHASONE ACETATE [Suspect]
     Indication: MULTIPLE MYELOMA
     Dosage: 40 MILLIGRAM
     Route: 048
     Dates: start: 20110210, end: 20110301
  7. DEXAMETHASONE ACETATE [Suspect]
     Dosage: 40 MILLIGRAM
     Route: 048
     Dates: start: 20110310, end: 20110330
  8. DEXAMETHASONE SODIUM PHOSPHATE [Concomitant]
     Indication: MULTIPLE MYELOMA
     Dosage: 33 MILLIGRAM
     Route: 048
     Dates: start: 20110113, end: 20110201
  9. REVLIMID [Suspect]
     Dosage: 10 MILLIGRAM
     Route: 048
     Dates: start: 20110802, end: 20110822
  10. REVLIMID [Suspect]
     Dosage: 5 MILLIGRAM
     Route: 048
     Dates: start: 20111025, end: 20111114
  11. DEXAMETHASONE ACETATE [Suspect]
     Dosage: 40 MILLIGRAM
     Route: 048
     Dates: start: 20111025, end: 20111028
  12. DEXAMETHASONE ACETATE [Suspect]
     Dosage: 4 MILLIGRAM
     Route: 048
     Dates: start: 20111204, end: 20120213
  13. YOUPIS [Concomitant]
     Indication: PROPHYLAXIS
     Dosage: 10 DROPS
     Route: 048
     Dates: start: 20110113, end: 20110402
  14. REVLIMID [Suspect]
     Indication: MULTIPLE MYELOMA
     Dosage: 10 MILLIGRAM
     Route: 048
     Dates: start: 20110113, end: 20110203
  15. REVLIMID [Suspect]
     Dosage: 10 MILLIGRAM
     Route: 048
     Dates: start: 20110210, end: 20110302
  16. REVLIMID [Suspect]
     Dosage: 15 MILLIGRAM
     Route: 048
     Dates: start: 20110407, end: 20110419
  17. DEXAMETHASONE ACETATE [Suspect]
     Dosage: 4 MILLIGRAM
     Route: 048
     Dates: start: 20111029, end: 20111114
  18. FAMOTIDINE [Concomitant]
     Indication: PROPHYLAXIS
     Dosage: 20 MILLIGRAM
     Route: 048
     Dates: start: 20110113, end: 20110402
  19. REVLIMID [Suspect]
     Dosage: 15 MILLIGRAM
     Route: 048
     Dates: start: 20110204, end: 20110419
  20. REVLIMID [Suspect]
     Dosage: 10 MILLIGRAM
     Route: 048
     Dates: start: 20110621, end: 20110705
  21. REVLIMID [Suspect]
     Dosage: 5 MILLIGRAM
     Route: 048
     Dates: start: 20111130, end: 20111220
  22. DEXAMETHASONE ACETATE [Suspect]
     Dosage: 40 MILLIGRAM
     Route: 048
     Dates: start: 20110407, end: 20110426
  23. ASPIRIN [Concomitant]
     Dosage: 100 MILLIGRAM
     Route: 048
     Dates: start: 20110802
  24. REVLIMID [Suspect]
     Dosage: 15 MILLIGRAM
     Route: 048
     Dates: start: 20110310, end: 20110330
  25. REVLIMID [Suspect]
     Dosage: 10 MILLIGRAM
     Route: 048
     Dates: start: 20110906, end: 20110926
  26. DEXAMETHASONE ACETATE [Suspect]
     Dosage: 40 MILLIGRAM
     Route: 048
     Dates: start: 20111130, end: 20111203
  27. MAGNESIUM OXIDE [Concomitant]
     Indication: PROPHYLAXIS
     Dosage: 1 GRAM
     Route: 048
     Dates: start: 20110113, end: 20110402
  28. MAGNESIUM OXIDE [Concomitant]
     Dosage: 1 GRAM
     Route: 048
     Dates: start: 20110802
  29. REVLIMID [Suspect]
     Dosage: 10 MILLIGRAM
     Route: 048
     Dates: start: 20110524, end: 20110614
  30. ASPIRIN [Concomitant]
     Dosage: 100 MILLIGRAM
     Route: 048
     Dates: start: 20110407, end: 20110726
  31. PANPYOTIN [Concomitant]
     Indication: PROPHYLAXIS
     Dosage: 2 GRAM
     Route: 048
     Dates: start: 20110113, end: 20110402
  32. MAGNESIUM OXIDE [Concomitant]
     Dosage: 1 GRAM
     Route: 048
     Dates: start: 20110407, end: 20110726

REACTIONS (9)
  - NEUTROPHIL COUNT DECREASED [None]
  - EYELID OEDEMA [None]
  - NEUROPATHY PERIPHERAL [None]
  - PLATELET COUNT DECREASED [None]
  - NEUTROPENIA [None]
  - HEPATITIS B [None]
  - ANAEMIA [None]
  - CONSTIPATION [None]
  - URTICARIA [None]
